FAERS Safety Report 13793345 (Version 1)
Quarter: 2017Q3

REPORT INFORMATION
  Report Type: Spontaneous
  Country: US (occurrence: US)
  Receive Date: 20170726
  Receipt Date: 20170726
  Transmission Date: 20171127
  Serious: No
  Sender: FDA-Public Use
  Company Number: US-B.I. PHARMACEUTICALS,INC./RIDGEFIELD-2017-BI-041067

PATIENT
  Age: 59 Year
  Sex: Male

DRUGS (8)
  1. XANEX [Concomitant]
     Indication: SLEEP DISORDER
     Dosage: DAILY BEDTIME;  FORM STRENGTH: .25MG; FORMULATION: TABLET
     Route: 048
  2. GABAPENTIN. [Concomitant]
     Active Substance: GABAPENTIN
     Indication: BACK DISORDER
     Dosage: 3 TIMES DAY;  FORM STRENGTH: 300MG; FORMULATION: TABLET
     Route: 048
  3. LISINOPRIL. [Concomitant]
     Active Substance: LISINOPRIL
     Indication: HYPERTENSION
     Dosage: DAILY;  FORM STRENGTH: 10MG; FORMULATION: TABLET
     Route: 048
  4. METOPROLOL TARTRATE. [Concomitant]
     Active Substance: METOPROLOL TARTRATE
     Indication: HYPERTENSION
     Dosage: TWICE A DAY;  FORM STRENGTH: 25MG; FORMULATION: TABLET
     Route: 048
  5. ATORVASTATIN [Concomitant]
     Active Substance: ATORVASTATIN
     Indication: BLOOD CHOLESTEROL INCREASED
     Dosage: DAILY;  FORM STRENGTH: 80MG; FORMULATION: TABLET
     Route: 048
  6. PRADAXA [Suspect]
     Active Substance: DABIGATRAN ETEXILATE MESYLATE
     Indication: ATRIAL FIBRILLATION
     Dosage: TWICE A DAY;  FORM STRENGTH: 150 MG; FORMULATION: CAPSULE? ADMINISTRATION CORRECT? YES ?ACTION(S) TA
     Route: 048
     Dates: start: 20170718
  7. EFFIENT [Concomitant]
     Active Substance: PRASUGREL HYDROCHLORIDE
     Indication: CARDIAC DISORDER
     Dosage: DAILY;  FORM STRENGTH: 10MG; FORMULATION: TABLET
     Route: 048
  8. PEPSID [Concomitant]
     Indication: PROPHYLAXIS
     Dosage: DAILY;  FORM STRENGTH: 20MG
     Route: 065

REACTIONS (3)
  - Chest pain [Not Recovered/Not Resolved]
  - Eructation [Not Recovered/Not Resolved]
  - Dyspepsia [Not Recovered/Not Resolved]

NARRATIVE: CASE EVENT DATE: 20170719
